FAERS Safety Report 9231679 (Version 1)
Quarter: 2013Q2

REPORT INFORMATION
  Report Type: Spontaneous
  Country: JP (occurrence: JP)
  Receive Date: 20130415
  Receipt Date: 20130415
  Transmission Date: 20140414
  Serious: Yes (Other)
  Sender: FDA-Public Use
  Company Number: JP-PFIZER INC-2013113467

PATIENT
  Age: 65 Year
  Sex: Male

DRUGS (1)
  1. VIAGRA [Suspect]
     Indication: ERECTILE DYSFUNCTION

REACTIONS (13)
  - Optic nerve disorder [Unknown]
  - Eye pain [Unknown]
  - Dysphagia [Unknown]
  - Sputum retention [Unknown]
  - Muscle rigidity [Unknown]
  - Skin erosion [Unknown]
  - Muscular weakness [Unknown]
  - Joint stiffness [Unknown]
  - Erectile dysfunction [Unknown]
  - Spontaneous penile erection [Unknown]
  - Dizziness [Unknown]
  - Mobility decreased [Unknown]
  - Hot flush [Unknown]
